FAERS Safety Report 11584606 (Version 2)
Quarter: 2015Q4

REPORT INFORMATION
  Report Type: Report from Study
  Country: US (occurrence: US)
  Receive Date: 20151001
  Receipt Date: 20151106
  Transmission Date: 20160304
  Serious: Yes (Life-Threatening, Hospitalization, Other)
  Sender: FDA-Public Use
  Company Number: US-009507513-1509USA014140

PATIENT
  Age: 14 Year
  Sex: Female
  Weight: 56 kg

DRUGS (12)
  1. METHOTREXATE [Suspect]
     Active Substance: METHOTREXATE
     Dosage: COURSE A,B: 3000 MG/M2, CYCLIC, (OVER 3 HOURS ON DAY 1)
     Route: 042
     Dates: start: 20140710, end: 20150108
  2. CYTARABINE. [Suspect]
     Active Substance: CYTARABINE
     Dosage: COURSE A: 150 MG/M2, CYCLICAL (OVER 1-30 MINUTES EVERY 12 HOURS ON DAYS 4 AND 5; TOTAL 4 DOSES)
     Route: 042
     Dates: start: 20141010, end: 20150112
  3. METHOTREXATE [Suspect]
     Active Substance: METHOTREXATE
     Indication: ANAPLASTIC LARGE CELL LYMPHOMA T- AND NULL-CELL TYPES
     Dosage: PROPHASE: 7.5-12 MG ON DAY 1 (AGE BASED DOSING)
     Route: 037
  4. CYCLOPHOSPHAMIDE. [Suspect]
     Active Substance: CYCLOPHOSPHAMIDE
     Dosage: PRO-PHASE: 200MG/M2, OVER 15-30 MINUTES ON DAYS 1 AND 2, ON DAYS 1-5 IN COURSE B
     Route: 042
     Dates: end: 20141220
  5. CRIZOTINIB [Suspect]
     Active Substance: CRIZOTINIB
     Indication: ANAPLASTIC LARGE CELL LYMPHOMA T- AND NULL-CELL TYPES
     Dosage: 165 MG/M2, CYCLICAL, TWICE DAILY ON DAYS 1-21
     Route: 048
     Dates: end: 20150112
  6. HEXADROL [Suspect]
     Active Substance: DEXAMETHASONE
     Dosage: COURSE A AND B: 5MG/M2 (TWICE DAILY ON DAYS 1-5)
     Route: 048
     Dates: start: 20140710, end: 20150112
  7. DOXORUBICIN HYDROCHLORIDE. [Suspect]
     Active Substance: DOXORUBICIN HYDROCHLORIDE
     Dosage: 25 MG/M2, CYCLICAL, OVER 1-15 MINUTES ON DAYS 4 AND 5
     Dates: end: 20141220
  8. HEXADROL [Suspect]
     Active Substance: DEXAMETHASONE
     Indication: ANAPLASTIC LARGE CELL LYMPHOMA T- AND NULL-CELL TYPES
     Dosage: PROPHASE: 5 MG/M2 (ONCE DAILY ON DAYS 1-2, AND TWICE DAILY ON DAYS 3-5)
     Route: 048
  9. CYTARABINE. [Suspect]
     Active Substance: CYTARABINE
     Indication: ANAPLASTIC LARGE CELL LYMPHOMA T- AND NULL-CELL TYPES
     Dosage: PROPHASE: 15-24 MG ON DAY 1 (AGE BASED DOSING)
     Route: 037
  10. IFOSFAMIDE. [Suspect]
     Active Substance: IFOSFAMIDE
     Indication: ANAPLASTIC LARGE CELL LYMPHOMA T- AND NULL-CELL TYPES
     Dosage: 800 MG/M2, CYCLICAL, OVER 60 MINUTES ON DAYS 1-5
     Route: 042
     Dates: start: 20140710, end: 20150111
  11. HYDROCORTONE [Suspect]
     Active Substance: HYDROCORTISONE
     Dosage: 7.5-12MG, ON DAY 1, AGE BASED DOSING
     Route: 037
  12. ETOPOSIDE. [Suspect]
     Active Substance: ETOPOSIDE
     Indication: ANAPLASTIC LARGE CELL LYMPHOMA T- AND NULL-CELL TYPES
     Dosage: 100 MG/M2, CYCLICAL, OVER 2 HOURS ON DAYS 4 AND 5
     Route: 042
     Dates: start: 20141010, end: 20150112

REACTIONS (3)
  - Pyrexia [Recovering/Resolving]
  - Haemoglobin decreased [Unknown]
  - White blood cell count decreased [Unknown]

NARRATIVE: CASE EVENT DATE: 20150116
